FAERS Safety Report 17415108 (Version 6)
Quarter: 2020Q2

REPORT INFORMATION
  Report Type: Report from Study
  Country: CA (occurrence: CA)
  Receive Date: 20200213
  Receipt Date: 20200616
  Transmission Date: 20200713
  Serious: Yes (Hospitalization, Other)
  Sender: FDA-Public Use
  Company Number: PHHY2019CA081846

PATIENT
  Age: 71 Year
  Sex: Female

DRUGS (2)
  1. SANDOSTATIN LAR DEPOT [Suspect]
     Active Substance: OCTREOTIDE ACETATE
     Indication: CARCINOID TUMOUR
     Dosage: 30 MG, QMO (EVERY 4 WEEKS)
     Route: 030
     Dates: start: 20190307
  2. SANDOSTATIN [Suspect]
     Active Substance: OCTREOTIDE ACETATE
     Indication: CARCINOID TUMOUR
     Dosage: UNK, ONCE/SINGLE
     Route: 058
     Dates: start: 20190301, end: 20190301

REACTIONS (18)
  - Arthralgia [Unknown]
  - Vomiting [Unknown]
  - Haemoglobin decreased [Unknown]
  - Groin pain [Unknown]
  - Abdominal distension [Not Recovered/Not Resolved]
  - Poor quality sleep [Unknown]
  - Rash [Unknown]
  - Pruritus [Not Recovered/Not Resolved]
  - Blood potassium decreased [Unknown]
  - Back pain [Unknown]
  - Nephrolithiasis [Unknown]
  - Peripheral swelling [Not Recovered/Not Resolved]
  - Urinary tract infection [Recovered/Resolved]
  - Abdominal pain upper [Unknown]
  - Blood pressure systolic increased [Unknown]
  - Nausea [Unknown]
  - Malignant neoplasm progression [Unknown]
  - Joint swelling [Unknown]

NARRATIVE: CASE EVENT DATE: 2019
